FAERS Safety Report 25529907 (Version 1)
Quarter: 2025Q3

REPORT INFORMATION
  Report Type: Spontaneous
  Country: US (occurrence: US)
  Receive Date: 20250708
  Receipt Date: 20250708
  Transmission Date: 20251021
  Serious: No
  Sender: ANI
  Company Number: US-ANIPHARMA-2025-US-026463

PATIENT
  Age: 18 Year
  Sex: Female
  Weight: 64.86 kg

DRUGS (3)
  1. INDERAL LA [Suspect]
     Active Substance: PROPRANOLOL HYDROCHLORIDE
     Indication: Ophthalmic migraine
     Route: 048
     Dates: start: 1987
  2. VITAMINS [Concomitant]
     Active Substance: VITAMINS
  3. UNSPECIFIED INGREDIENT [Interacting]
     Active Substance: UNSPECIFIED INGREDIENT
     Dates: start: 202505

REACTIONS (8)
  - Drug ineffective for unapproved indication [Recovered/Resolved]
  - Drug interaction [Unknown]
  - Cough [Not Recovered/Not Resolved]
  - Nasal congestion [Not Recovered/Not Resolved]
  - Product use in unapproved indication [Not Recovered/Not Resolved]
  - Product dose omission issue [Unknown]
  - Dyspnoea [Not Recovered/Not Resolved]
  - Respiratory tract infection [Not Recovered/Not Resolved]

NARRATIVE: CASE EVENT DATE: 19870101
